FAERS Safety Report 9010630 (Version 2)
Quarter: 2014Q1

REPORT INFORMATION
  Report Type: Spontaneous
  Country: GB (occurrence: GB)
  Receive Date: 20130109
  Receipt Date: 20140122
  Transmission Date: 20141002
  Serious: Yes (Life-Threatening, Hospitalization)
  Sender: FDA-Public Use
  Company Number: GB-BAXTER-2012BAX022238

PATIENT
  Age: 72 Year
  Sex: 0

DRUGS (10)
  1. METRONIDAZOLE 500 MG / 100 ML INTRAVENOUS INFUSION [Suspect]
     Indication: PRODUCT USED FOR UNKNOWN INDICATION
     Route: 041
     Dates: start: 20110308, end: 20110308
  2. CEFTRIAXONE [Suspect]
     Indication: PANCREATITIS
     Route: 041
     Dates: start: 20110803, end: 20110803
  3. CEFUROXIME [Suspect]
     Indication: PRODUCT USED FOR UNKNOWN INDICATION
     Route: 041
     Dates: start: 20110803, end: 20110803
  4. CO-AMOXICLAV [Suspect]
     Indication: SEPSIS
     Route: 041
     Dates: start: 20110328, end: 20110403
  5. ERYTHROMYCIN [Suspect]
     Indication: PRODUCT USED FOR UNKNOWN INDICATION
     Route: 048
     Dates: start: 20110319, end: 20110325
  6. FLUCLOXACILLIN [Suspect]
     Indication: PRODUCT USED FOR UNKNOWN INDICATION
     Route: 048
     Dates: start: 20100908
  7. MEROPENEM [Suspect]
     Indication: PANCREATITIS NECROTISING
     Route: 041
     Dates: start: 20110309, end: 20110313
  8. PIPERACILLIN [Suspect]
     Indication: PNEUMONIA
     Route: 041
     Dates: start: 20110420, end: 20110425
  9. TRIMETHOPRIM [Suspect]
     Indication: URINARY TRACT INFECTION
     Route: 048
     Dates: start: 20110305, end: 20110305
  10. TAZOBACTAM [Suspect]
     Indication: PNEUMONIA
     Route: 042
     Dates: start: 20110420, end: 20110425

REACTIONS (1)
  - Clostridium test positive [Recovered/Resolved]
